FAERS Safety Report 25395268 (Version 1)
Quarter: 2025Q2

REPORT INFORMATION
  Report Type: Spontaneous
  Country: ES (occurrence: ES)
  Receive Date: 20250604
  Receipt Date: 20250604
  Transmission Date: 20250716
  Serious: Yes (Hospitalization)
  Sender: TEVA
  Company Number: None

PATIENT
  Age: 69 Year
  Sex: Female

DRUGS (4)
  1. ALPRAZOLAM [Interacting]
     Active Substance: ALPRAZOLAM
     Indication: Fibromyalgia
     Dosage: ALPRAZOLAM (99A)
     Route: 048
     Dates: start: 20250310
  2. AMIODARONE HYDROCHLORIDE [Interacting]
     Active Substance: AMIODARONE HYDROCHLORIDE
     Indication: Atrial fibrillation
     Dosage: AMIODARONE HYDROCHLORIDE (392CH)
     Route: 048
     Dates: start: 20250313, end: 20250320
  3. DULOXETINE [Interacting]
     Active Substance: DULOXETINE
     Indication: Fibromyalgia
     Dosage: DULOXETINE (7421A)
     Route: 048
     Dates: start: 20250310
  4. OLANZAPINE [Interacting]
     Active Substance: OLANZAPINE
     Indication: Fibromyalgia
     Dosage: OLANZAPINE (2770A)
     Route: 048
     Dates: start: 20250310

REACTIONS (1)
  - Somnolence [Recovered/Resolved]

NARRATIVE: CASE EVENT DATE: 20250317
